FAERS Safety Report 17082367 (Version 4)
Quarter: 2021Q1

REPORT INFORMATION
  Report Type: Report from Study
  Country: US (occurrence: US)
  Receive Date: 20191127
  Receipt Date: 20210310
  Transmission Date: 20210419
  Serious: Yes (Hospitalization, Other)
  Sender: FDA-Public Use
  Company Number: US-SA-2019SA312517

PATIENT
  Age: 49 Year
  Sex: Female

DRUGS (1)
  1. ALEMTUZUMAB [Suspect]
     Active Substance: ALEMTUZUMAB
     Indication: MULTIPLE SCLEROSIS
     Dosage: 12 MG, QD
     Route: 041
     Dates: start: 20191104, end: 20191106

REACTIONS (10)
  - Blood creatinine abnormal [Not Recovered/Not Resolved]
  - Heart rate decreased [Recovering/Resolving]
  - Cough [Unknown]
  - Chest discomfort [Recovered/Resolved]
  - Chest pain [Unknown]
  - Bradycardia [Unknown]
  - Dyspnoea [Unknown]
  - Hepatic enzyme increased [Not Recovered/Not Resolved]
  - Fatigue [Unknown]
  - Somnolence [Unknown]

NARRATIVE: CASE EVENT DATE: 201911
